FAERS Safety Report 17278150 (Version 1)
Quarter: 2020Q1

REPORT INFORMATION
  Report Type: Spontaneous
  Country: US (occurrence: US)
  Receive Date: 20200116
  Receipt Date: 20200116
  Transmission Date: 20200409
  Serious: No
  Sender: FDA-Public Use
  Company Number: None

PATIENT
  Age: 37 Year
  Sex: Female
  Weight: 99.9 kg

DRUGS (1)
  1. ATENOLOL 25 MG [Suspect]
     Active Substance: ATENOLOL
     Indication: HEART RATE
     Dosage: ?          QUANTITY:1 TABLET(S);?
     Route: 048
     Dates: start: 20200106, end: 20200116

REACTIONS (4)
  - Product colour issue [None]
  - Product solubility abnormal [None]
  - Back pain [None]
  - Fluid retention [None]

NARRATIVE: CASE EVENT DATE: 20200106
